FAERS Safety Report 13923650 (Version 1)
Quarter: 2017Q3

REPORT INFORMATION
  Report Type: Spontaneous
  Country: US (occurrence: US)
  Receive Date: 20170830
  Receipt Date: 20170830
  Transmission Date: 20171127
  Serious: Yes (Hospitalization)
  Sender: FDA-Public Use
  Company Number: None

PATIENT
  Age: 67 Year
  Sex: Female
  Weight: 77 kg

DRUGS (5)
  1. RAMUCIRUMAB [Suspect]
     Active Substance: RAMUCIRUMAB
     Indication: OESOPHAGEAL ADENOCARCINOMA
     Dosage: ?          OTHER FREQUENCY:Q14DAYS;?
     Route: 040
     Dates: start: 20170712, end: 20170809
  2. ASPIRIN. [Concomitant]
     Active Substance: ASPIRIN
  3. PACLITAXEL. [Concomitant]
     Active Substance: PACLITAXEL
  4. FISH OIL [Concomitant]
     Active Substance: FISH OIL
  5. CITALOPRAM [Concomitant]
     Active Substance: CITALOPRAM HYDROBROMIDE

REACTIONS (1)
  - Conjunctival haemorrhage [None]

NARRATIVE: CASE EVENT DATE: 20170829
